FAERS Safety Report 6859092-2 (Version None)
Quarter: 2010Q3

REPORT INFORMATION
  Report Type: 
  Country: None (occurrence: None)
  Receive Date: 20100719
  Receipt Date: 20080416
  Transmission Date: 20110219
  Serious: No
  Sender: FDA-Public Use
  Company Number: US-PFIZER INC-2008017257

PATIENT
  Sex: Female

DRUGS (2)
  1. CHANTIX [Suspect]
  2. MELATONIN [Concomitant]

REACTIONS (8)
  - ABDOMINAL DISCOMFORT [None]
  - ANGER [None]
  - DRUG INEFFECTIVE [None]
  - FATIGUE [None]
  - HEADACHE [None]
  - HYPERSOMNIA [None]
  - INSOMNIA [None]
  - SLEEP DISORDER [None]
